FAERS Safety Report 10352215 (Version 2)
Quarter: 2014Q3

REPORT INFORMATION
  Report Type: Spontaneous
  Country: US (occurrence: US)
  Receive Date: 20140730
  Receipt Date: 20140730
  Transmission Date: 20150326
  Serious: No
  Sender: FDA-Public Use
  Company Number: US-ABBVIE-13P-163-1107071-00

PATIENT
  Age: 38 Year

DRUGS (5)
  1. VITAMIN D3 [Concomitant]
     Active Substance: CHOLECALCIFEROL
     Indication: PRODUCT USED FOR UNKNOWN INDICATION
  2. CITRANATAL DHA [Concomitant]
     Active Substance: ALPHA-TOCOPHEROL ACETATE\ASCORBIC ACID\CALCIUM CITRATE\CUPRIC OXIDE\DOCUSATE SODIUM\FOLIC ACID\IRON\NIACINAMIDE\POTASSIUM IODIDE\PYRIDOXINE HYDROCHLORIDE\RIBOFLAVIN\THIAMINE\VITAMIN D\ZINC OXIDE
     Indication: PRODUCT USED FOR UNKNOWN INDICATION
     Dosage: TABLET/CAPSULE
  3. SYNTHROID [Suspect]
     Active Substance: LEVOTHYROXINE SODIUM
     Dosage: ALTERNATING WITH 88 MCG DOSE (2X PER WEEK)
  4. SYNTHROID [Suspect]
     Active Substance: LEVOTHYROXINE SODIUM
     Indication: HYPOTHYROIDISM
     Dosage: ALTERNATING WITH 75 MCG DOSE (5X PER WEEK)
  5. CABERGOLINE. [Concomitant]
     Active Substance: CABERGOLINE
     Indication: PITUITARY TUMOUR BENIGN
     Dates: start: 200908, end: 201009

REACTIONS (4)
  - Cough [Unknown]
  - Chills [Unknown]
  - Pyrexia [Unknown]
  - Postpartum depression [Unknown]

NARRATIVE: CASE EVENT DATE: 20120911
